FAERS Safety Report 19313095 (Version 2)
Quarter: 2021Q2

REPORT INFORMATION
  Report Type: Other
  Country: CA (occurrence: CA)
  Receive Date: 20210527
  Receipt Date: 20210614
  Transmission Date: 20210717
  Serious: Yes (Hospitalization, Other)
  Sender: FDA-Public Use
  Company Number: CA-ROCHE-2719864

PATIENT
  Age: 9 Year
  Sex: Female

DRUGS (14)
  1. RITUXIMAB. [Suspect]
     Active Substance: RITUXIMAB
     Indication: GRANULOMATOSIS WITH POLYANGIITIS
     Route: 042
  2. PREDNISONE. [Suspect]
     Active Substance: PREDNISONE
     Route: 065
  3. RITUXIMAB. [Suspect]
     Active Substance: RITUXIMAB
     Dosage: WHICH WILL BE REDUCED TO 500 MG EVERY 6 MONTHS IN 6?12 MONTH
     Route: 042
  4. CYCLOPHOSPHAMIDE. [Suspect]
     Active Substance: CYCLOPHOSPHAMIDE
     Indication: GRANULOMATOSIS WITH POLYANGIITIS
     Route: 042
  5. LEFLUNOMIDE. [Suspect]
     Active Substance: LEFLUNOMIDE
     Indication: GRANULOMATOSIS WITH POLYANGIITIS
     Route: 065
     Dates: start: 2013, end: 201806
  6. IMMUNOGLOBULIN HUMAN NORMAL [Suspect]
     Active Substance: HUMAN IMMUNOGLOBULIN G
     Indication: GRANULOMATOSIS WITH POLYANGIITIS
     Route: 042
  7. AVACOPAN. [Concomitant]
     Active Substance: AVACOPAN
     Route: 048
  8. PREDNISONE. [Suspect]
     Active Substance: PREDNISONE
     Indication: GRANULOMATOSIS WITH POLYANGIITIS
     Route: 065
  9. RITUXIMAB. [Suspect]
     Active Substance: RITUXIMAB
     Route: 042
  10. MYCOPHENOLATE MOFETIL. [Suspect]
     Active Substance: MYCOPHENOLATE MOFETIL
     Indication: GRANULOMATOSIS WITH POLYANGIITIS
     Route: 065
  11. METHOTREXATE. [Suspect]
     Active Substance: METHOTREXATE
     Indication: GRANULOMATOSIS WITH POLYANGIITIS
     Route: 065
  12. ECULIZUMAB [Suspect]
     Active Substance: ECULIZUMAB
     Indication: GRANULOMATOSIS WITH POLYANGIITIS
     Route: 065
  13. PREDNISONE. [Suspect]
     Active Substance: PREDNISONE
     Route: 065
     Dates: start: 2010
  14. AZATHIOPRINE. [Suspect]
     Active Substance: AZATHIOPRINE
     Indication: GRANULOMATOSIS WITH POLYANGIITIS
     Route: 065

REACTIONS (11)
  - Pneumocystis jirovecii pneumonia [Unknown]
  - Arthritis bacterial [Unknown]
  - Osteoporosis [Unknown]
  - Cytomegalovirus infection [Unknown]
  - Pneumonia bacterial [Unknown]
  - Drug ineffective [Unknown]
  - Osteomyelitis [Unknown]
  - Hypersensitivity [Unknown]
  - Cytopenia [Unknown]
  - Osteonecrosis [Unknown]
  - Condition aggravated [Unknown]
